FAERS Safety Report 6855910-2 (Version None)
Quarter: 2010Q3

REPORT INFORMATION
  Report Type: 
  Country: None (occurrence: None)
  Receive Date: 20100719
  Receipt Date: 20100713
  Transmission Date: 20110219
  Serious: Yes (Death)
  Sender: FDA-Public Use
  Company Number: EG-ELI_LILLY_AND_COMPANY-EG200909002430

PATIENT
  Age: 58 Year
  Sex: Male
  Weight: 80 kg

DRUGS (5)
  1. PEMETREXED [Suspect]
     Indication: NON-SMALL CELL LUNG CANCER
     Dosage: 970 MG (500MG/M2), UNK
     Route: 042
  2. CISPLATIN [Suspect]
     Indication: NON-SMALL CELL LUNG CANCER
     Dosage: 145.5 MG (75MG/M2) UNKNOWN
     Route: 042
  3. DEXAMETHASONE [Concomitant]
     Dosage: UNK, UNKNOWN
     Dates: start: 20090830
  4. FOLIC ACID [Concomitant]
     Dosage: UNK, UNKNOWN
  5. BISOLVON [Concomitant]
     Dosage: UNK, UNKNOWN
     Dates: start: 20090831

REACTIONS (1)
  - DEATH [None]
